FAERS Safety Report 16307588 (Version 2)
Quarter: 2019Q2

REPORT INFORMATION
  Report Type: Report from Study
  Country: US (occurrence: US)
  Receive Date: 20190514
  Receipt Date: 20190516
  Transmission Date: 20190711
  Serious: Yes (Other)
  Sender: FDA-Public Use
  Company Number: US-ROCHE-2317560

PATIENT
  Sex: Female

DRUGS (2)
  1. XOLAIR [Suspect]
     Active Substance: OMALIZUMAB
     Indication: ASTHMA
     Dosage: ONGOING:NO
     Route: 065
     Dates: start: 201808
  2. XOLAIR [Suspect]
     Active Substance: OMALIZUMAB
     Indication: ASTHMA
     Dosage: SAME DOSE RECEIVED ON SUBSEQUENT DATE: 21/AUG/2018, 18/SEP/2018, 02/OCT/2018, 30/OCT/2018, 30/OCT/20
     Route: 065
     Dates: start: 20180807

REACTIONS (1)
  - Anaphylactic reaction [Unknown]
